FAERS Safety Report 15215022 (Version 1)
Quarter: 2018Q4

REPORT INFORMATION
  Report Type: Spontaneous
  Country: PT (occurrence: PT)
  Receive Date: 20180730
  Receipt Date: 20180730
  Transmission Date: 20190204
  Serious: Yes (Hospitalization)
  Sender: FDA-Public Use
  Company Number: PT-SA-2018SA194949

PATIENT
  Age: 77 Year
  Sex: Female

DRUGS (2)
  1. ENOXAPARIN SODIUM. [Suspect]
     Active Substance: ENOXAPARIN SODIUM
     Indication: PRODUCT USED FOR UNKNOWN INDICATION
     Dosage: 10 MG, QD
     Route: 058
  2. VESSEL [SULODEXIDE] [Suspect]
     Active Substance: SULODEXIDE
     Indication: SKIN ULCER
     Dosage: 600 LSU/2 ML
     Route: 030
     Dates: start: 20180607, end: 20180608

REACTIONS (2)
  - Sepsis [Recovered/Resolved with Sequelae]
  - Thrombocytopenia [Recovered/Resolved with Sequelae]

NARRATIVE: CASE EVENT DATE: 2018
